FAERS Safety Report 19363626 (Version 1)
Quarter: 2021Q2

REPORT INFORMATION
  Report Type: Spontaneous
  Country: US (occurrence: US)
  Receive Date: 20210602
  Receipt Date: 20210602
  Transmission Date: 20210717
  Serious: No
  Sender: FDA-Public Use
  Company Number: US-PFIZER INC-2021254213

PATIENT
  Age: 71 Year
  Sex: Male

DRUGS (1)
  1. METHOTREXATE SODIUM. [Suspect]
     Active Substance: METHOTREXATE SODIUM
     Dosage: UNK

REACTIONS (6)
  - Rash macular [Unknown]
  - Arthralgia [Unknown]
  - Hypoacusis [Unknown]
  - Scab [Unknown]
  - Therapeutic product effect decreased [Unknown]
  - Streptococcal infection [Unknown]
